FAERS Safety Report 4780074-9 (Version None)
Quarter: 2005Q3

REPORT INFORMATION
  Report Type: 
  Country: None (occurrence: None)
  Receive Date: 20050927
  Receipt Date: 20050811
  Transmission Date: 20060218
  Serious: Yes (Death, Other)
  Sender: FDA-Public Use
  Company Number: AU-MERCK-0508AUS00067

PATIENT
  Age: 80 Year
  Sex: Female

DRUGS (1)
  1. ZOCOR [Suspect]
     Route: 048

REACTIONS (6)
  - DEATH [None]
  - DIABETES MELLITUS [None]
  - GALLBLADDER CANCER [None]
  - GLUCOSE TOLERANCE IMPAIRED [None]
  - METASTASES TO LIVER [None]
  - METASTASES TO LUNG [None]
